FAERS Safety Report 7324349-8 (Version None)
Quarter: 2011Q1

REPORT INFORMATION
  Report Type: 
  Country: None (occurrence: None)
  Receive Date: 20110301
  Receipt Date: 20110224
  Transmission Date: 20110831
  Serious: Yes (Other)
  Sender: FDA-Public Use
  Company Number: CH-ABBOTT-11P-151-0707432-00

PATIENT
  Age: 42 Year
  Sex: Male
  Weight: 64 kg

DRUGS (10)
  1. KALETRA [Suspect]
     Indication: HIV INFECTION
     Route: 048
     Dates: start: 20081115
  2. LOSARTAM POTASSIUM [Concomitant]
     Indication: HYPERTENSIVE NEPHROPATHY
     Dates: start: 20050602
  3. LOSARTAM POTASSIUM [Concomitant]
     Indication: HYPERTENSIVE HEART DISEASE
  4. BISOPROLOL FUMARATE AND HYDROCHLOROTHIAZIDE [Concomitant]
     Indication: HYPERTENSIVE NEPHROPATHY
     Dosage: 1 DF DOSAGE FORM
     Route: 048
     Dates: start: 20061130
  5. NORVIR [Interacting]
     Indication: HIV INFECTION
     Route: 048
     Dates: start: 20051208, end: 20081115
  6. TENOFOVIR DISOPROXIL FUMARATE [Interacting]
     Indication: HIV INFECTION
     Dates: start: 20030703, end: 20081115
  7. ATAZANAVIR [Interacting]
     Indication: HIV INFECTION
     Route: 048
     Dates: start: 20051208, end: 20080815
  8. DIDANOSINE [Interacting]
     Indication: HIV INFECTION
     Route: 048
     Dates: start: 20050703, end: 20081015
  9. EMTRICITABINE [Interacting]
     Indication: HIV INFECTION
     Route: 048
     Dates: start: 20081115, end: 20110202
  10. BISOPROLOL FUMARATE AND HYDROCHLOROTHIAZIDE [Concomitant]
     Indication: HYPERTENSIVE HEART DISEASE

REACTIONS (8)
  - PROTEINURIA [None]
  - GLYCOSURIA [None]
  - FANCONI SYNDROME [None]
  - BLOOD BICARBONATE DECREASED [None]
  - BLOOD CREATININE INCREASED [None]
  - DRUG INTERACTION [None]
  - HYPOPHOSPHATAEMIA [None]
  - BLOOD PH DECREASED [None]
